FAERS Safety Report 5096248-6 (Version None)
Quarter: 2006Q3

REPORT INFORMATION
  Report Type: 
  Country: None (occurrence: None)
  Receive Date: 20060905
  Receipt Date: 20060822
  Transmission Date: 20061208
  Serious: Yes (Death, Life-Threatening, Hospitalization)
  Sender: FDA-Public Use
  Company Number: GB-MERCK-0608GBR00110

PATIENT
  Age: 63 Year
  Sex: Female
  Weight: 45 kg

DRUGS (10)
  1. HYDROCORTONE [Suspect]
     Route: 048
     Dates: start: 20051208, end: 20060122
  2. PREDNISOLONE [Suspect]
     Route: 048
     Dates: start: 20051118, end: 20060122
  3. REMICADE [Suspect]
     Route: 042
     Dates: start: 20051215, end: 20051215
  4. ATENOLOL [Concomitant]
     Route: 048
     Dates: end: 20051227
  5. ENOXAPARIN SODIUM [Concomitant]
     Route: 058
     Dates: start: 20051208, end: 20051220
  6. FOSAMAX [Concomitant]
     Route: 048
     Dates: start: 20051220, end: 20051227
  7. QUININE SULFATE [Concomitant]
     Route: 048
     Dates: end: 20051227
  8. CALCIUM CARBONATE AND CHOLECALCIFEROL [Concomitant]
     Route: 048
     Dates: start: 20051219, end: 20051221
  9. SIMVASTATIN [Concomitant]
     Route: 048
     Dates: end: 20051227
  10. POTASSIUM BICARBONATE AND POTASSIUM CHLORIDE [Concomitant]
     Route: 048

REACTIONS (5)
  - ARTHRITIS [None]
  - ISCHAEMIC STROKE [None]
  - PEPTIC ULCER HAEMORRHAGE [None]
  - PNEUMONIA STAPHYLOCOCCAL [None]
  - SEPSIS [None]
